FAERS Safety Report 8593494-1 (Version None)
Quarter: 2012Q3

REPORT INFORMATION
  Report Type: 
  Country: None (occurrence: None)
  Receive Date: 20120814
  Receipt Date: 20120801
  Transmission Date: 20120928
  Serious: Yes (Death)
  Sender: FDA-Public Use
  Company Number: US-MYLANLABS-2009S1017214

PATIENT
  Age: 58 Year
  Sex: Female
  Weight: 60.33 kg

DRUGS (19)
  1. TOPAMAX [Concomitant]
  2. METROGEL [Concomitant]
  3. FENTANYL [Suspect]
     Indication: NECK PAIN
     Route: 062
     Dates: start: 20070820, end: 20070929
  4. REQUIP [Concomitant]
  5. TRAZODONE HYDROCHLORIDE [Concomitant]
  6. SKELAXIN [Concomitant]
  7. SEROQUEL [Concomitant]
  8. LORAZEPAM [Concomitant]
  9. TRAMADOL HCL [Concomitant]
  10. METHYLIN [Concomitant]
  11. LOTREL [Concomitant]
     Dosage: 10MG/40MG
  12. DEPO-ESTRADIOL [Concomitant]
  13. MEDROXYPROGESTERONE [Concomitant]
  14. FENTANYL [Suspect]
     Indication: BACK PAIN
     Route: 062
     Dates: start: 20070820, end: 20070929
  15. EFFEXOR XR [Concomitant]
  16. METOPROLOL SUCCINATE [Concomitant]
  17. LUNESTA [Concomitant]
  18. LEVOTHYROXINE SODIUM [Concomitant]
  19. XENICAL [Concomitant]

REACTIONS (1)
  - TOXICITY TO VARIOUS AGENTS [None]
